FAERS Safety Report 10355688 (Version 1)
Quarter: 2014Q3

REPORT INFORMATION
  Report Type: Spontaneous
  Country: CH (occurrence: CH)
  Receive Date: 20140731
  Receipt Date: 20140731
  Transmission Date: 20150326
  Serious: Yes (Hospitalization)
  Sender: FDA-Public Use
  Company Number: CH-ASTRAZENECA-2014SE54381

PATIENT
  Age: 67 Year
  Sex: Male

DRUGS (17)
  1. SIFROL [Concomitant]
     Active Substance: PRAMIPEXOLE
     Route: 048
  2. DIOVAN [Concomitant]
     Active Substance: VALSARTAN
     Route: 048
  3. NEXIUM [Suspect]
     Active Substance: ESOMEPRAZOLE MAGNESIUM
     Route: 048
     Dates: start: 20140526, end: 20140608
  4. VANCOMYCIN [Suspect]
     Active Substance: VANCOMYCIN
     Indication: SEPTIC ARTHRITIS STAPHYLOCOCCAL
     Route: 014
     Dates: start: 20140528, end: 20140623
  5. AUGMENTIN [Suspect]
     Active Substance: AMOXICILLIN\CLAVULANATE POTASSIUM
     Indication: SEPTIC ARTHRITIS STAPHYLOCOCCAL
     Route: 040
     Dates: start: 20140524, end: 20140604
  6. DIAMICRON [Concomitant]
     Active Substance: GLICLAZIDE
     Route: 048
  7. OXYNORM [Concomitant]
     Active Substance: OXYCODONE HYDROCHLORIDE
     Route: 048
     Dates: start: 20140528, end: 20140529
  8. VANCOMYCIN [Suspect]
     Active Substance: VANCOMYCIN
     Indication: SEPTIC ARTHRITIS STAPHYLOCOCCAL
     Route: 040
     Dates: start: 20140528, end: 20140611
  9. METFORMIN [Concomitant]
     Active Substance: METFORMIN HYDROCHLORIDE
     Route: 048
  10. PERFALGAN [Concomitant]
     Active Substance: ACETAMINOPHEN
     Route: 040
     Dates: start: 20140525, end: 20140530
  11. GENTAMYCIN [Concomitant]
     Active Substance: GENTAMICIN
     Route: 014
     Dates: start: 20140528, end: 20140623
  12. VENLAFAXINE [Concomitant]
     Active Substance: VENLAFAXINE HYDROCHLORIDE
     Route: 048
  13. MYDOCALM [Suspect]
     Active Substance: TOLPERISONE
     Route: 048
     Dates: start: 20140605, end: 20140612
  14. CLEXAN [Concomitant]
     Route: 058
     Dates: start: 20140525
  15. CUBICINE [Concomitant]
     Route: 040
     Dates: start: 20140612
  16. TOBRAMYCIN [Concomitant]
     Active Substance: TOBRAMYCIN
     Route: 014
     Dates: start: 20140528, end: 20140623
  17. IRFEN [Concomitant]
     Active Substance: IBUPROFEN
     Route: 048
     Dates: start: 201405

REACTIONS (3)
  - Granulocytopenia [Recovered/Resolved]
  - White blood cell count decreased [Recovered/Resolved]
  - Febrile neutropenia [Recovered/Resolved]

NARRATIVE: CASE EVENT DATE: 20140610
